FAERS Safety Report 16176581 (Version 1)
Quarter: 2019Q2

REPORT INFORMATION
  Report Type: Spontaneous
  Country: GB (occurrence: GB)
  Receive Date: 20190409
  Receipt Date: 20190409
  Transmission Date: 20190711
  Serious: Yes (Life-Threatening, Hospitalization)
  Sender: FDA-Public Use
  Company Number: GB-PFIZER INC-2019148806

PATIENT
  Age: 28 Year
  Sex: Female
  Weight: 134.6 kg

DRUGS (3)
  1. FRAGMIN [Suspect]
     Active Substance: DALTEPARIN SODIUM
     Indication: PROPHYLACTIC CHEMOTHERAPY
     Dosage: 5000 IU, UNK
     Route: 058
     Dates: start: 20180418, end: 20180425
  2. CALCICHEW D3 [Concomitant]
     Active Substance: CALCIUM\CHOLECALCIFEROL
  3. MULTIVITAMINS [VITAMINS NOS] [Concomitant]
     Active Substance: VITAMINS
     Dosage: UNK

REACTIONS (5)
  - Post procedural haemorrhage [Recovered/Resolved with Sequelae]
  - Ileus [Unknown]
  - Acidosis [Unknown]
  - Hypotension [Unknown]
  - Coagulopathy [Recovered/Resolved with Sequelae]

NARRATIVE: CASE EVENT DATE: 20180424
